FAERS Safety Report 7682858-6 (Version None)
Quarter: 2011Q3

REPORT INFORMATION
  Report Type: 
  Country: None (occurrence: None)
  Receive Date: 20110815
  Receipt Date: 20110804
  Transmission Date: 20111222
  Serious: Yes (Other)
  Sender: FDA-Public Use
  Company Number: US-ROCHE-786582

PATIENT
  Sex: Male
  Weight: 83.9 kg

DRUGS (3)
  1. ACCUTANE [Suspect]
     Indication: ACNE
     Dosage: THERAPY DURATION FOR 3 MOTNHS
     Route: 065
     Dates: start: 19970201
  2. ACCUTANE [Suspect]
     Route: 065
     Dates: start: 19980101, end: 19990101
  3. ACCUTANE [Suspect]
     Dosage: THERAPY DURATION FOR 1 MONTH
     Route: 065
     Dates: start: 20050101

REACTIONS (3)
  - DEPRESSION [None]
  - INJURY [None]
  - COLITIS [None]
